FAERS Safety Report 24084654 (Version 1)
Quarter: 2024Q3

REPORT INFORMATION
  Report Type: Spontaneous
  Country: CA (occurrence: CA)
  Receive Date: 20240712
  Receipt Date: 20240712
  Transmission Date: 20241017
  Serious: Yes (Life-Threatening, Hospitalization, Other)
  Sender: PFIZER
  Company Number: CA-PFIZER INC-PV202400089989

PATIENT
  Age: 10 Year
  Sex: Female

DRUGS (9)
  1. SIROLIMUS [Suspect]
     Active Substance: SIROLIMUS
     Indication: Lymphangioma
     Dosage: 1.6 MG/M2, 2X/DAY
     Route: 048
  2. SIROLIMUS [Suspect]
     Active Substance: SIROLIMUS
     Dosage: 0.8 MG/M2, 2X/DAY
     Route: 048
  3. SIROLIMUS [Suspect]
     Active Substance: SIROLIMUS
     Dosage: 1.5 MG/M2, 2X/DAY
     Route: 048
  4. SIROLIMUS [Suspect]
     Active Substance: SIROLIMUS
     Dosage: 2 MG/M2, 2X/DAY
     Route: 048
  5. SIROLIMUS [Suspect]
     Active Substance: SIROLIMUS
     Dosage: UNK (HALVED)
     Route: 048
  6. VINCRISTINE SULFATE [Suspect]
     Active Substance: VINCRISTINE SULFATE
     Indication: Lymphangioma
     Dosage: 0.05 MG/KG, WEEKLY
     Route: 042
  7. VINCRISTINE SULFATE [Suspect]
     Active Substance: VINCRISTINE SULFATE
     Dosage: 0.05 MG/KG (THEN EVERY 2 OR 3 WEEKS FOR 1 MORE YEAR)
     Route: 042
  8. PREDNISONE [Suspect]
     Active Substance: PREDNISONE
     Indication: Lymphangioma
     Dosage: 1 MG/KG, DAILY
  9. PROPRANOLOL [Suspect]
     Active Substance: PROPRANOLOL HYDROCHLORIDE
     Indication: Lymphangioma
     Dosage: 1 MG/KG, DAILY
     Route: 048

REACTIONS (2)
  - Drug ineffective for unapproved indication [Unknown]
  - Off label use [Unknown]
